FAERS Safety Report 8905222 (Version 1)
Quarter: 2012Q4

REPORT INFORMATION
  Report Type: 
  Country: US (occurrence: US)
  Receive Date: 20121109
  Receipt Date: 20121109
  Transmission Date: 20130627
  Serious: Yes (Death)
  Sender: FDA-Public Use
  Company Number: US-ASTRAZENECA-2012SE00708

PATIENT
  Age: 68 Year
  Sex: Male

DRUGS (18)
  1. SYMBICORT PMDI [Suspect]
     Route: 055
  2. ZESTRIL [Suspect]
     Dosage: GENERIC
     Route: 048
  3. ASPIRIN [Concomitant]
     Route: 048
  4. ALBUTEROL NEBULIZER [Concomitant]
     Dosage: AD
  5. ATROVENT HFA [Concomitant]
  6. CELEXA [Concomitant]
     Route: 048
  7. FERROUS SULFATE [Concomitant]
     Route: 048
  8. LIPITOR [Concomitant]
     Route: 048
  9. METOPROLOL TARTRATE [Concomitant]
     Route: 048
  10. MULTIVITAMIN TABLET [Concomitant]
     Route: 048
  11. NITROGLYCERIN [Concomitant]
     Route: 060
  12. OXYGEN [Concomitant]
     Dosage: HS
  13. PULMICORT RESPULES [Concomitant]
     Dosage: AD
  14. VITAMIN B12 [Concomitant]
     Route: 060
  15. FAMOTIDINE [Concomitant]
     Route: 048
  16. COUMADIN [Concomitant]
     Route: 048
  17. VIDAZA [Concomitant]
     Route: 042
  18. STOOL SOFTENER [Concomitant]
     Dosage: AD

REACTIONS (3)
  - Death [Fatal]
  - Drug intolerance [Unknown]
  - Cough [Unknown]
